FAERS Safety Report 4469228-9 (Version None)
Quarter: 2004Q4

REPORT INFORMATION
  Report Type: 
  Country: None (occurrence: None)
  Receive Date: 20041008
  Receipt Date: 20040928
  Transmission Date: 20050328
  Serious: Yes (Hospitalization)
  Sender: FDA-Public Use
  Company Number: 200413658FR

PATIENT
  Age: 60 Year
  Sex: Male

DRUGS (8)
  1. RIFADIN [Suspect]
     Indication: AORTIC VALVE DISEASE
  2. RIFADIN [Suspect]
     Indication: INFECTION
  3. TARGOCID [Suspect]
     Indication: AORTIC VALVE DISEASE
     Dates: start: 20040701, end: 20040701
  4. TARGOCID [Suspect]
     Indication: INFECTION
     Dates: start: 20040701, end: 20040701
  5. VANCOMYCIN [Suspect]
     Indication: AORTIC VALVE DISEASE
     Route: 042
     Dates: start: 20040601, end: 20040701
  6. VANCOMYCIN [Suspect]
     Indication: INFECTION
     Route: 042
     Dates: start: 20040601, end: 20040701
  7. AUGMENTIN [Concomitant]
     Dates: start: 20040101, end: 20040101
  8. GENTAMYCIN [Concomitant]
     Dates: start: 20040501, end: 20040612

REACTIONS (8)
  - ANAEMIA [None]
  - CHILLS [None]
  - EOSINOPHILIA [None]
  - HYPERSENSITIVITY [None]
  - IMMUNE SYSTEM DISORDER [None]
  - LYMPHADENOPATHY [None]
  - PYREXIA [None]
  - RENAL FAILURE [None]
